FAERS Safety Report 7493153-2 (Version None)
Quarter: 2011Q2

REPORT INFORMATION
  Report Type: 
  Country: None (occurrence: None)
  Receive Date: 20110519
  Receipt Date: 20110519
  Transmission Date: 20111010
  Serious: Yes (Life-Threatening, Hospitalization, Disabling, Other)
  Sender: FDA-Public Use
  Company Number: None

PATIENT
  Age: 35 Day
  Sex: Male
  Weight: 4.0824 kg

DRUGS (1)
  1. AZITHROMYCIN [Suspect]
     Indication: BRONCHITIS
     Dates: start: 20110414, end: 20110418

REACTIONS (2)
  - MATERNAL DRUGS AFFECTING FOETUS [None]
  - PYLORIC STENOSIS [None]
